FAERS Safety Report 10012917 (Version 2)
Quarter: 2014Q1

REPORT INFORMATION
  Report Type: Spontaneous
  Country: US (occurrence: US)
  Receive Date: 20140314
  Receipt Date: 20140320
  Transmission Date: 20141002
  Serious: Yes (Other)
  Sender: FDA-Public Use
  Company Number: US-JNJFOC-20140302276

PATIENT
  Sex: Male

DRUGS (3)
  1. KETOCONAZOLE [Suspect]
     Indication: PROSTATE CANCER
     Route: 048
  2. HYDROCORTISONE [Suspect]
     Indication: PRODUCT USED FOR UNKNOWN INDICATION
     Dosage: IN THE MORNING
     Route: 048
  3. HYDROCORTISONE [Suspect]
     Indication: PRODUCT USED FOR UNKNOWN INDICATION
     Dosage: IN THE EVENING
     Route: 048

REACTIONS (3)
  - Adverse event [Unknown]
  - Toxicity to various agents [Unknown]
  - Off label use [Unknown]
